FAERS Safety Report 9034162 (Version 1)
Quarter: 2013Q1

REPORT INFORMATION
  Report Type: Spontaneous
  Country: US (occurrence: None)
  Receive Date: 20130114
  Receipt Date: 20130114
  Transmission Date: 20140127
  Serious: Yes (Hospitalization, Other)
  Sender: FDA-Public Use
  Company Number: KAD201301-000006

PATIENT
  Age: 56 Year
  Sex: Male

DRUGS (4)
  1. RIBAVIRIN (RIBAVIRIN) [Suspect]
  2. INTERFERON ALFACON-1 (INTERFERON ALFACON-1) [Suspect]
  3. PEGYLATED INTERFERON ALFA-2A (PEGYLATED INTERFERON ALFA-2A) [Suspect]
     Route: 058
  4. TELAPREVIR (TELAPREVIR) ? [Suspect]

REACTIONS (4)
  - Rectal haemorrhage [None]
  - Drug reaction with eosinophilia and systemic symptoms [None]
  - Bacteraemia [None]
  - Substance-induced psychotic disorder [None]
